FAERS Safety Report 8552017 (Version 2)
Quarter: 2012Q4

REPORT INFORMATION
  Report Type: 
  Country: US (occurrence: US)
  Receive Date: 20120508
  Receipt Date: 20120830
  Transmission Date: 20130627
  Serious: Yes (Hospitalization)
  Sender: FDA-Public Use
  Company Number: US-BAYER-2012-043756

PATIENT
  Age: 19 Year
  Sex: Female
  Weight: 54.42 kg

DRUGS (8)
  1. YAZ [Suspect]
     Indication: CONTRACEPTION
     Dosage: UNK
     Dates: start: 20080731, end: 20090508
  2. YAZ [Suspect]
     Indication: ACNE
  3. AMPICILLIN [Concomitant]
     Indication: ACNE
     Dosage: 250 mg, BID
     Route: 048
     Dates: start: 2007
  4. AMPICILLIN [Concomitant]
     Indication: ACNE
     Dosage: 250 mg, twice daily
     Route: 048
     Dates: start: 20100616, end: 20120326
  5. MULTIVITAMINS WITH IRON [VIT C,B12,D2,B3,P+,B6,RETINOL,B2,B1 HCL,V [Concomitant]
     Dosage: 1 daily
     Route: 048
     Dates: start: 20080404, end: 20101013
  6. PRILOSEC [Concomitant]
     Indication: DYSPEPSIA
     Dosage: UNK
     Dates: start: 20090803
  7. GARDASIL [Concomitant]
     Dosage: ONCE
     Dates: start: 20090803
  8. JUNEL FE [Concomitant]
     Indication: CONTRACEPTION
     Dosage: one pill daily
     Dates: start: 20090804, end: 20090914

REACTIONS (8)
  - Cholecystitis [None]
  - Injury [None]
  - Emotional distress [None]
  - Anxiety [None]
  - Anhedonia [None]
  - Abdominal pain [None]
  - Myalgia [None]
  - Night sweats [None]
